FAERS Safety Report 20102008 (Version 2)
Quarter: 2022Q1

REPORT INFORMATION
  Report Type: Spontaneous
  Country: US (occurrence: None)
  Receive Date: 20211123
  Receipt Date: 20220104
  Transmission Date: 20220423
  Serious: No
  Sender: FDA-Public Use
  Company Number: 2021A800765

PATIENT
  Age: 27556 Day
  Sex: Female
  Weight: 68 kg

DRUGS (1)
  1. FASENRA [Suspect]
     Active Substance: BENRALIZUMAB
     Indication: Asthma
     Route: 058
     Dates: start: 202104

REACTIONS (4)
  - COVID-19 [Recovering/Resolving]
  - Angina pectoris [Unknown]
  - Renal cyst [Unknown]
  - Corneal disorder [Not Recovered/Not Resolved]

NARRATIVE: CASE EVENT DATE: 20210809
